FAERS Safety Report 4740417-9 (Version None)
Quarter: 2005Q3

REPORT INFORMATION
  Report Type: 
  Country: None (occurrence: None)
  Receive Date: 20050810
  Receipt Date: 20050801
  Transmission Date: 20060218
  Serious: Yes (Death, Hospitalization)
  Sender: FDA-Public Use
  Company Number: PHEH2005US08456

PATIENT
  Age: 66 Year
  Sex: Female

DRUGS (6)
  1. DICLOFENAC [Suspect]
     Dates: start: 20010901, end: 20011010
  2. ACYCLOVIR [Suspect]
  3. INFLIXIMAB [Suspect]
  4. HYOSCYAMINE [Concomitant]
  5. HYDROXYZINE [Concomitant]
  6. PROPACET 100 [Concomitant]

REACTIONS (28)
  - ABDOMINAL DISTENSION [None]
  - ABDOMINAL PAIN LOWER [None]
  - ABDOMINAL PAIN UPPER [None]
  - ABDOMINAL WALL ABSCESS [None]
  - ABDOMINAL WALL DISORDER [None]
  - ADHESION [None]
  - ANOREXIA [None]
  - BLOOD ALBUMIN DECREASED [None]
  - BLOOD UREA INCREASED [None]
  - CHEST X-RAY ABNORMAL [None]
  - DEHYDRATION [None]
  - DIARRHOEA [None]
  - FISTULA [None]
  - FUNGUS CULTURE POSITIVE [None]
  - GENERALISED OEDEMA [None]
  - ILEUS [None]
  - INTESTINAL OBSTRUCTION [None]
  - LIVER FUNCTION TEST ABNORMAL [None]
  - MALNUTRITION [None]
  - NAUSEA [None]
  - OEDEMA PERIPHERAL [None]
  - PYREXIA [None]
  - SEPSIS [None]
  - SMALL INTESTINAL OBSTRUCTION [None]
  - SOMNOLENCE [None]
  - VOMITING [None]
  - WEIGHT DECREASED [None]
  - WHITE BLOOD CELL COUNT INCREASED [None]
